FAERS Safety Report 6272358-2 (Version None)
Quarter: 2009Q3

REPORT INFORMATION
  Report Type: 
  Country: None (occurrence: None)
  Receive Date: 20090715
  Receipt Date: 20090706
  Transmission Date: 20100115
  Serious: Yes (Hospitalization)
  Sender: FDA-Public Use
  Company Number: LIT-09-0010-W

PATIENT

DRUGS (2)
  1. CITALOPRAM HYDROBROMIDE [Suspect]
     Indication: AUTISM SPECTRUM DISORDER
     Dosage: 047
  2. CITALOPRAM HYDROBROMIDE [Suspect]
     Indication: STEREOTYPY
     Dosage: 047

REACTIONS (11)
  - CONVULSION [None]
  - DIARRHOEA [None]
  - DISTURBANCE IN ATTENTION [None]
  - DRUG INEFFECTIVE [None]
  - DRY SKIN [None]
  - ENERGY INCREASED [None]
  - HYPERKINESIA [None]
  - INSOMNIA [None]
  - PERSONALITY DISORDER [None]
  - PRURITUS [None]
  - STEREOTYPY [None]
